FAERS Safety Report 18096129 (Version 3)
Quarter: 2022Q4

REPORT INFORMATION
  Report Type: Report from Study
  Country: US (occurrence: US)
  Receive Date: 20200731
  Receipt Date: 20221128
  Transmission Date: 20230113
  Serious: Yes (Hospitalization, Other)
  Sender: FDA-Public Use
  Company Number: US-SHIRE-US202024340

PATIENT
  Age: 73 Year
  Sex: Male

DRUGS (9)
  1. PARATHYROID HORMONE [Suspect]
     Active Substance: PARATHYROID HORMONE
     Indication: Hypoparathyroidism
     Dosage: 75 MICROGRAM
     Route: 058
     Dates: start: 201905
  2. PARATHYROID HORMONE [Suspect]
     Active Substance: PARATHYROID HORMONE
     Indication: Hypoparathyroidism
     Dosage: 75 MICROGRAM
     Route: 058
     Dates: start: 201905
  3. PARATHYROID HORMONE [Suspect]
     Active Substance: PARATHYROID HORMONE
     Indication: Hypoparathyroidism
     Dosage: 75 MICROGRAM
     Route: 058
     Dates: start: 201905
  4. PARATHYROID HORMONE [Suspect]
     Active Substance: PARATHYROID HORMONE
     Indication: Blood calcium decreased
     Dosage: 50 INTERNATIONAL UNIT, QD
     Route: 058
     Dates: start: 201905
  5. PARATHYROID HORMONE [Suspect]
     Active Substance: PARATHYROID HORMONE
     Indication: Blood calcium decreased
     Dosage: 50 INTERNATIONAL UNIT, QD
     Route: 058
     Dates: start: 201905
  6. PARATHYROID HORMONE [Suspect]
     Active Substance: PARATHYROID HORMONE
     Indication: Blood calcium decreased
     Dosage: 50 INTERNATIONAL UNIT, QD
     Route: 058
     Dates: start: 201905
  7. PARATHYROID HORMONE [Suspect]
     Active Substance: PARATHYROID HORMONE
     Dosage: 75 MICROGRAM, QD
     Route: 058
  8. PARATHYROID HORMONE [Suspect]
     Active Substance: PARATHYROID HORMONE
     Dosage: 75 MICROGRAM, QD
     Route: 058
  9. PARATHYROID HORMONE [Suspect]
     Active Substance: PARATHYROID HORMONE
     Dosage: 75 MICROGRAM, QD
     Route: 058

REACTIONS (3)
  - Blood calcium decreased [Unknown]
  - Recalled product [Unknown]
  - Product storage error [Unknown]

NARRATIVE: CASE EVENT DATE: 20211029
